FAERS Safety Report 19052336 (Version 2)
Quarter: 2021Q2

REPORT INFORMATION
  Report Type: Spontaneous
  Country: US (occurrence: US)
  Receive Date: 20210324
  Receipt Date: 20210401
  Transmission Date: 20210717
  Serious: No
  Sender: FDA-Public Use
  Company Number: US-ASTRAZENECA-2021A127169

PATIENT
  Sex: Female
  Weight: 75.3 kg

DRUGS (1)
  1. BYDUREON BCISE [Suspect]
     Active Substance: EXENATIDE
     Indication: TYPE 2 DIABETES MELLITUS
     Dosage: ONCE A WEEK
     Route: 065

REACTIONS (4)
  - Incorrect dose administered by device [Unknown]
  - Dysphagia [Unknown]
  - Device leakage [Unknown]
  - Intentional device misuse [Unknown]
